FAERS Safety Report 5469496-0 (Version None)
Quarter: 2007Q3

REPORT INFORMATION
  Report Type: 
  Country: None (occurrence: None)
  Receive Date: 20070927
  Receipt Date: 20070920
  Transmission Date: 20080115
  Serious: Yes (Death, Hospitalization)
  Sender: FDA-Public Use
  Company Number: A0683361A

PATIENT
  Sex: Female

DRUGS (2)
  1. FLU VACCINE [Suspect]
     Indication: PROPHYLAXIS
     Route: 065
  2. LAMICTAL [Suspect]
     Indication: DRUG USE FOR UNKNOWN INDICATION
     Route: 048

REACTIONS (4)
  - INFLUENZA LIKE ILLNESS [None]
  - ORGAN FAILURE [None]
  - PYREXIA [None]
  - STEVENS-JOHNSON SYNDROME [None]
